FAERS Safety Report 4355383-8 (Version None)
Quarter: 2004Q2

REPORT INFORMATION
  Report Type: 
  Country: None (occurrence: None)
  Receive Date: 20040505
  Receipt Date: 20040419
  Transmission Date: 20050107
  Serious: No
  Sender: FDA-Public Use
  Company Number: 2003GB02793

PATIENT
  Age: 37 Year
  Sex: Female

DRUGS (3)
  1. LOSEC [Suspect]
     Indication: GASTROOESOPHAGEAL REFLUX DISEASE
     Dosage: 20 MG QD; PO
     Route: 048
     Dates: start: 20021001, end: 20040130
  2. THYROXINE [Concomitant]
  3. GAVISCON [Concomitant]

REACTIONS (5)
  - DRUG EXPOSURE DURING PREGNANCY [None]
  - GESTATIONAL DIABETES [None]
  - INTRA-UTERINE DEATH [None]
  - PRE-ECLAMPSIA [None]
  - PREGNANCY [None]
